FAERS Safety Report 11290903 (Version 1)
Quarter: 2015Q3

REPORT INFORMATION
  Report Type: Spontaneous
  Country: US (occurrence: US)
  Receive Date: 20150722
  Receipt Date: 20150722
  Transmission Date: 20151125
  Serious: No
  Sender: FDA-Public Use
  Company Number: US-UNITED THERAPEUTICS-UNT-2015-005123

PATIENT
  Sex: Female
  Weight: 54.42 kg

DRUGS (6)
  1. COUMADIN [Concomitant]
     Active Substance: WARFARIN SODIUM
     Indication: PRODUCT USED FOR UNKNOWN INDICATION
  2. LETAIRIS [Concomitant]
     Active Substance: AMBRISENTAN
     Indication: PRODUCT USED FOR UNKNOWN INDICATION
  3. ADCIRCA [Concomitant]
     Active Substance: TADALAFIL
     Indication: PRODUCT USED FOR UNKNOWN INDICATION
  4. REMODULIN [Suspect]
     Active Substance: TREPROSTINIL
     Dosage: 0.032 ?G/KG/MIN,CONTINUING
     Route: 041
     Dates: start: 20140818
  5. REMODULIN [Suspect]
     Active Substance: TREPROSTINIL
     Indication: PULMONARY HYPERTENSION
     Dosage: 0.032 ?G/KG/MIN, CONTINUING
     Route: 041
     Dates: start: 20140819
  6. REMODULIN [Suspect]
     Active Substance: TREPROSTINIL
     Dosage: 0.032 ?G/KG/MIN, CONTINUING
     Route: 041
     Dates: start: 20140427

REACTIONS (5)
  - Injection site irritation [Unknown]
  - Condition aggravated [Unknown]
  - Fall [Unknown]
  - Dermatitis contact [Unknown]
  - Musculoskeletal chest pain [Unknown]
